FAERS Safety Report 14953519 (Version 4)
Quarter: 2018Q3

REPORT INFORMATION
  Report Type: Report from Study
  Country: CA (occurrence: CA)
  Receive Date: 20180530
  Receipt Date: 20180712
  Transmission Date: 20181010
  Serious: Yes (Hospitalization, Other)
  Sender: FDA-Public Use
  Company Number: CA-JNJFOC-20180533186

PATIENT
  Age: 69 Year
  Sex: Male
  Weight: 104 kg

DRUGS (5)
  1. STELARA [Suspect]
     Active Substance: USTEKINUMAB
     Indication: COLITIS ULCERATIVE
     Dosage: STRENGTH = 90 MG
     Route: 058
     Dates: start: 20180215
  2. STELARA [Suspect]
     Active Substance: USTEKINUMAB
     Indication: COLITIS ULCERATIVE
     Route: 058
  3. STELARA [Suspect]
     Active Substance: USTEKINUMAB
     Indication: PSORIASIS
     Route: 058
  4. PREDNISONE. [Suspect]
     Active Substance: PREDNISONE
     Indication: PRODUCT USED FOR UNKNOWN INDICATION
     Route: 065
  5. STELARA [Suspect]
     Active Substance: USTEKINUMAB
     Indication: PSORIASIS
     Dosage: STRENGTH = 90 MG
     Route: 058
     Dates: start: 20180215

REACTIONS (9)
  - Sinusitis [Unknown]
  - Depression [Unknown]
  - Product use issue [Unknown]
  - Colitis ulcerative [Recovering/Resolving]
  - Anaemia [Unknown]
  - Musculoskeletal stiffness [Recovered/Resolved]
  - Off label use [Unknown]
  - Lower respiratory tract infection [Unknown]
  - Cholelithiasis [Recovering/Resolving]

NARRATIVE: CASE EVENT DATE: 2018
